FAERS Safety Report 10777550 (Version 1)
Quarter: 2015Q1

REPORT INFORMATION
  Report Type: Spontaneous
  Country: BR (occurrence: BR)
  Receive Date: 20150209
  Receipt Date: 20150209
  Transmission Date: 20150721
  Serious: Yes (Other)
  Sender: FDA-Public Use
  Company Number: BR-BAYER-2015-014279

PATIENT
  Age: 0 Day
  Sex: Male
  Weight: 6 kg

DRUGS (1)
  1. YASMIN [Suspect]
     Active Substance: DROSPIRENONE\ETHINYL ESTRADIOL
     Route: 064

REACTIONS (8)
  - Frequent bowel movements [None]
  - Weight gain poor [None]
  - Premature baby [None]
  - Gastrointestinal disorder [None]
  - Vomiting [None]
  - Swelling [Recovered/Resolved]
  - Gastrooesophageal reflux disease [None]
  - Alopecia areata [None]

NARRATIVE: CASE EVENT DATE: 20140717
